FAERS Safety Report 16739346 (Version 1)
Quarter: 2019Q4

REPORT INFORMATION
  Report Type: Spontaneous
  Country: US (occurrence: US)
  Receive Date: 20190824
  Receipt Date: 20190824
  Transmission Date: 20200122
  Serious: Yes (Life-Threatening, Hospitalization, Disabling)
  Sender: FDA-Public Use
  Company Number: None

PATIENT
  Age: 31 Year
  Sex: Female
  Weight: 63.5 kg

DRUGS (1)
  1. NEXPLANON [Suspect]
     Active Substance: ETONOGESTREL
     Dates: start: 20190607, end: 20190809

REACTIONS (8)
  - Product complaint [None]
  - Personality change [None]
  - Suicidal ideation [None]
  - Emotional distress [None]
  - Disturbance in attention [None]
  - Metrorrhagia [None]
  - Crying [None]
  - Loss of libido [None]

NARRATIVE: CASE EVENT DATE: 20190809
